FAERS Safety Report 5753477-3 (Version None)
Quarter: 2008Q2

REPORT INFORMATION
  Report Type: 
  Country: None (occurrence: None)
  Receive Date: 20080530
  Receipt Date: 20080229
  Transmission Date: 20081010
  Serious: No
  Sender: FDA-Public Use
  Company Number: US-AMGEN-US267568

PATIENT
  Sex: Male
  Weight: 95.3 kg

DRUGS (4)
  1. VECTIBIX [Suspect]
     Indication: COLORECTAL CANCER
     Route: 042
     Dates: start: 20071220, end: 20071220
  2. IRINOTECAN HCL [Concomitant]
     Dates: start: 20071220
  3. DEXAMETHASONE TAB [Concomitant]
     Dates: start: 20071220
  4. ALOXI [Concomitant]
     Dates: start: 20071220

REACTIONS (3)
  - RASH [None]
  - RASH ERYTHEMATOUS [None]
  - RASH PUSTULAR [None]
